FAERS Safety Report 9932476 (Version 1)
Quarter: 2014Q1

REPORT INFORMATION
  Report Type: Spontaneous
  Country: US (occurrence: US)
  Receive Date: 20140228
  Receipt Date: 20140228
  Transmission Date: 20141002
  Serious: Yes (Other)
  Sender: FDA-Public Use
  Company Number: US-GLAXOSMITHKLINE-A1016863A

PATIENT
  Age: 59 Year
  Sex: Male

DRUGS (11)
  1. LAMICTAL [Suspect]
     Indication: BIPOLAR DISORDER
     Dosage: 125MG PER DAY
     Route: 048
  2. LEXAPRO [Concomitant]
  3. LITHIUM [Concomitant]
  4. PREDNISONE [Concomitant]
  5. RAMIPRIL [Concomitant]
  6. DILTIAZEM [Concomitant]
  7. ANDROGEL [Concomitant]
  8. SYNTHROID [Concomitant]
  9. WARFARIN [Concomitant]
  10. LEVAQUIN [Concomitant]
  11. FLUCONAZOLE [Concomitant]

REACTIONS (1)
  - Rash maculo-papular [Recovered/Resolved]
